FAERS Safety Report 16360149 (Version 19)
Quarter: 2024Q3

REPORT INFORMATION
  Report Type: Report from Study
  Country: CA (occurrence: CA)
  Receive Date: 20190528
  Receipt Date: 20240814
  Transmission Date: 20241017
  Serious: Yes (Other)
  Sender: ROCHE
  Company Number: CA-ROCHE-2195293

PATIENT
  Age: 51 Year
  Sex: Female
  Weight: 86.18 kg

DRUGS (5)
  1. OCREVUS [Suspect]
     Active Substance: OCRELIZUMAB
     Indication: Relapsing-remitting multiple sclerosis
     Dosage: 300 MG AT DAY 0 AND 14, THEN 600 MG EVERY 6 MONTHS
     Route: 042
     Dates: start: 20181002
  2. BENADRYL [Suspect]
     Active Substance: DIPHENHYDRAMINE HYDROCHLORIDE
     Indication: Product used for unknown indication
     Route: 065
  3. SYNTHROID [Concomitant]
     Active Substance: LEVOTHYROXINE SODIUM
     Dosage: SUBSEQUENT DOSE 0.75 MG
     Route: 048
  4. SOLIFENACIN [Concomitant]
     Active Substance: SOLIFENACIN
     Indication: Pollakiuria
     Route: 048
  5. VESICARE [Concomitant]
     Active Substance: SOLIFENACIN SUCCINATE

REACTIONS (29)
  - Thyroid cancer [Not Recovered/Not Resolved]
  - Visual impairment [Not Recovered/Not Resolved]
  - Ear pruritus [Recovered/Resolved]
  - Dry throat [Recovered/Resolved]
  - Erythema [Recovered/Resolved]
  - Pruritus [Recovered/Resolved]
  - Ear discomfort [Recovered/Resolved]
  - Rash macular [Recovered/Resolved]
  - Headache [Recovered/Resolved]
  - Fatigue [Recovering/Resolving]
  - Somnolence [Not Recovered/Not Resolved]
  - Pyrexia [Recovered/Resolved]
  - Influenza [Recovering/Resolving]
  - Fall [Unknown]
  - Pain in extremity [Recovered/Resolved]
  - Fatigue [Not Recovered/Not Resolved]
  - Temperature intolerance [Unknown]
  - Humidity intolerance [Unknown]
  - Pain [Recovering/Resolving]
  - Flushing [Not Recovered/Not Resolved]
  - Contusion [Recovering/Resolving]
  - Head injury [Recovered/Resolved]
  - Tinnitus [Unknown]
  - Dry eye [Unknown]
  - Joint dislocation [Not Recovered/Not Resolved]
  - Hot flush [Not Recovered/Not Resolved]
  - Erythema [Not Recovered/Not Resolved]
  - Asthenia [Unknown]
  - Impaired driving ability [Unknown]

NARRATIVE: CASE EVENT DATE: 20181002
